FAERS Safety Report 6841391-1 (Version None)
Quarter: 2010Q3

REPORT INFORMATION
  Report Type: 
  Country: None (occurrence: None)
  Receive Date: 20100714
  Receipt Date: 20070824
  Transmission Date: 20110219
  Serious: No
  Sender: FDA-Public Use
  Company Number: US-PFIZER INC-2007054221

PATIENT
  Sex: Female
  Weight: 57.2 kg

DRUGS (15)
  1. CHANTIX [Suspect]
     Indication: SMOKING CESSATION THERAPY
     Route: 048
     Dates: start: 20070620, end: 20070628
  2. LIPITOR [Concomitant]
     Route: 048
  3. PROTONIX [Concomitant]
     Route: 048
  4. METHOTREXATE [Concomitant]
     Route: 048
  5. PREMARIN [Concomitant]
     Route: 048
  6. ZANTAC [Concomitant]
     Route: 048
  7. VITAMIN C [Concomitant]
     Route: 048
  8. HYOSCYAMINE [Concomitant]
     Route: 048
  9. MOBIC [Concomitant]
     Route: 048
  10. MONTELUKAST SODIUM [Concomitant]
     Route: 048
  11. SERTRALINE HCL [Concomitant]
  12. ALL OTHER THERAPEUTIC PRODUCTS [Concomitant]
  13. MUCINEX [Concomitant]
  14. CLARINEX [Concomitant]
  15. PULMICORT [Concomitant]

REACTIONS (4)
  - NAUSEA [None]
  - POOR QUALITY SLEEP [None]
  - PRURITUS [None]
  - RASH [None]
